FAERS Safety Report 7371232-8 (Version None)
Quarter: 2011Q1

REPORT INFORMATION
  Report Type: 
  Country: None (occurrence: None)
  Receive Date: 20110324
  Receipt Date: 20110310
  Transmission Date: 20110831
  Serious: Yes (Other)
  Sender: FDA-Public Use
  Company Number: US-JNJFOC-20110305435

PATIENT
  Sex: Female
  Weight: 68.04 kg

DRUGS (5)
  1. HUMIRA [Concomitant]
     Indication: CROHN'S DISEASE
     Route: 058
  2. IBUPROFEN [Concomitant]
     Indication: PRODUCT USED FOR UNKNOWN INDICATION
     Route: 048
  3. REMICADE [Suspect]
     Indication: PRODUCT USED FOR UNKNOWN INDICATION
     Route: 042
  4. MESALAMINE [Concomitant]
     Indication: COLITIS ULCERATIVE
     Dosage: 400MG, 12 IN 1 D
     Route: 048
  5. MESALAMINE [Concomitant]
     Indication: CROHN'S DISEASE
     Dosage: 400MG, 12 IN 1 D
     Route: 048

REACTIONS (3)
  - HYPOAESTHESIA [None]
  - DRUG HYPERSENSITIVITY [None]
  - URTICARIA [None]
